FAERS Safety Report 17164339 (Version 1)
Quarter: 2019Q4

REPORT INFORMATION
  Report Type: Spontaneous
  Country: CA (occurrence: CA)
  Receive Date: 20191217
  Receipt Date: 20191217
  Transmission Date: 20200122
  Serious: Yes (Other)
  Sender: FDA-Public Use
  Company Number: CA-CELLTRION INC.-2019CA027295

PATIENT

DRUGS (8)
  1. DICLOFENAC POTASSIUM. [Suspect]
     Active Substance: DICLOFENAC POTASSIUM
     Dosage: 50 MG, 2X/DAY
     Route: 048
  2. PREDNISONE. [Suspect]
     Active Substance: PREDNISONE
     Indication: ANKYLOSING SPONDYLITIS
     Dosage: 1 DF, 1X/DAY
     Route: 048
  3. INFLIXIMAB PFIZER (UNKNOWN) [Suspect]
     Active Substance: INFLIXIMAB
     Indication: ANKYLOSING SPONDYLITIS
     Dosage: 198 MG, UNK
     Route: 042
  4. METHOTREXATE SODIUM. [Suspect]
     Active Substance: METHOTREXATE SODIUM
     Dosage: UNK
  5. DICLOFENAC SODIUM. [Suspect]
     Active Substance: DICLOFENAC SODIUM
     Dosage: 1 DF, 2X/DAY
     Route: 048
  6. NAPROXEN. [Suspect]
     Active Substance: NAPROXEN
     Dosage: 500 MG, 1X/DAY
     Route: 065
  7. MELOXICAM. [Suspect]
     Active Substance: MELOXICAM
     Dosage: 15 MG, 1X/DAY
  8. ADVIL [Suspect]
     Active Substance: IBUPROFEN
     Dosage: UNK
     Route: 065

REACTIONS (9)
  - Drug intolerance [Unknown]
  - Eye pain [Unknown]
  - Vision blurred [Unknown]
  - Nausea [Unknown]
  - Ankylosing spondylitis [Unknown]
  - Back pain [Unknown]
  - Treatment failure [Unknown]
  - Vomiting [Unknown]
  - Dizziness [Unknown]
